FAERS Safety Report 5219031-7 (Version None)
Quarter: 2007Q1

REPORT INFORMATION
  Report Type: 
  Country: None (occurrence: None)
  Receive Date: 20070125
  Receipt Date: 20070118
  Transmission Date: 20070707
  Serious: Yes (Hospitalization)
  Sender: FDA-Public Use
  Company Number: US-ELI_LILLY_AND_COMPANY-US200612000622

PATIENT
  Age: 68 Year
  Sex: Male
  Weight: 122 kg

DRUGS (11)
  1. XIGRIS [Suspect]
     Indication: SEPSIS
     Dosage: UNK, UNK
     Route: 042
     Dates: start: 20061201, end: 20061202
  2. LOVENOX [Concomitant]
     Dosage: 40 MG, DAILY (1/D)
     Dates: start: 20061130, end: 20061201
  3. ZOSYN [Concomitant]
     Dosage: 4.5 G, EVERY 8 HRS
  4. ZOSYN [Concomitant]
     Dosage: 2.25 G, EVERY 6 HRS
     Dates: end: 20061202
  5. PRIMAXIN [Concomitant]
     Dates: start: 20061202
  6. FLAGYL [Concomitant]
     Dosage: 500 MG, EVERY 8 HRS
     Route: 042
  7. PROTONIX [Concomitant]
     Dosage: 40 MG, DAILY (1/D)
     Route: 042
     Dates: end: 20061129
  8. PROTONIX [Concomitant]
     Dosage: 40 MG, DAILY (1/D)
     Route: 042
     Dates: start: 20061202
  9. TPN [Concomitant]
     Route: 042
  10. PEPCID [Concomitant]
     Route: 042
     Dates: start: 20061130, end: 20061201
  11. DIFLUCAN [Concomitant]
     Dosage: 100 MG, DAILY (1/D)
     Route: 042

REACTIONS (3)
  - ACCIDENTAL OVERDOSE [None]
  - MEDICATION ERROR [None]
  - PLATELET COUNT DECREASED [None]
